FAERS Safety Report 8409256-1 (Version None)
Quarter: 2012Q2

REPORT INFORMATION
  Report Type: 
  Country: None (occurrence: None)
  Receive Date: 20120604
  Receipt Date: 20120514
  Transmission Date: 20120825
  Serious: No
  Sender: FDA-Public Use
  Company Number: US-ASTRAZENECA-2012SE31296

PATIENT
  Age: 40 Year
  Sex: Female

DRUGS (5)
  1. TOPROL-XL [Suspect]
     Route: 048
  2. GLUCOTROL [Concomitant]
  3. LISINOPRIL [Suspect]
     Route: 048
  4. NORVASC [Concomitant]
  5. PRAVASTATIN [Concomitant]

REACTIONS (8)
  - CELLULITIS [None]
  - FURUNCLE [None]
  - HYPERLIPIDAEMIA [None]
  - HYPERTENSION [None]
  - DIABETES MELLITUS [None]
  - DRUG NAME CONFUSION [None]
  - ABSCESS [None]
  - CARBUNCLE [None]
